FAERS Safety Report 7364018-1 (Version None)
Quarter: 2011Q1

REPORT INFORMATION
  Report Type: 
  Country: None (occurrence: None)
  Receive Date: 20110321
  Receipt Date: 20100809
  Transmission Date: 20110831
  Serious: No
  Sender: FDA-Public Use
  Company Number: US-BAYER-201032898NA

PATIENT
  Sex: Female

DRUGS (1)
  1. MIRENA [Suspect]
     Dosage: 20 MCG/24HR, CONT
     Route: 015
     Dates: start: 20100701, end: 20100807

REACTIONS (5)
  - POST PROCEDURAL HAEMORRHAGE [None]
  - GENITAL HAEMORRHAGE [None]
  - PAIN [None]
  - DEVICE EXPULSION [None]
  - DYSMENORRHOEA [None]
